FAERS Safety Report 23246845 (Version 1)
Quarter: 2023Q4

REPORT INFORMATION
  Report Type: Spontaneous
  Country: US (occurrence: None)
  Receive Date: 20231130
  Receipt Date: 20231130
  Transmission Date: 20240110
  Serious: No
  Sender: FDA-Public Use
  Company Number: None

PATIENT
  Sex: 0

DRUGS (4)
  1. AMIODARONE [Suspect]
     Active Substance: AMIODARONE
  2. ADENOSINE [Suspect]
     Active Substance: ADENOSINE
  3. AMIODARONE [Concomitant]
     Active Substance: AMIODARONE
  4. ADENOSINE [Concomitant]
     Active Substance: ADENOSINE

REACTIONS (2)
  - Product label confusion [None]
  - Product name confusion [None]

NARRATIVE: CASE EVENT DATE: 20231129
